FAERS Safety Report 10209401 (Version 2)
Quarter: 2014Q3

REPORT INFORMATION
  Report Type: Spontaneous
  Country: US (occurrence: ES)
  Receive Date: 20140531
  Receipt Date: 20140807
  Transmission Date: 20150326
  Serious: Yes (Death, Life-Threatening, Hospitalization)
  Sender: FDA-Public Use
  Company Number: 2014SP002978

PATIENT
  Age: 54 Year
  Sex: Male

DRUGS (19)
  1. METOCLOPRAMIDE. [Concomitant]
     Active Substance: METOCLOPRAMIDE
     Dates: start: 20111207, end: 20111210
  2. ENANTYUM [Concomitant]
     Active Substance: DEXKETOPROFEN TROMETAMOL
     Dates: start: 20111207, end: 20111208
  3. OMEPRAZOLE. [Concomitant]
     Active Substance: OMEPRAZOLE
     Dates: start: 20111031
  4. LACTITOL [Concomitant]
     Active Substance: LACTITOL
     Dates: start: 20111210, end: 20111210
  5. FILGRASTIM [Concomitant]
     Active Substance: FILGRASTIM
     Dates: start: 20111205, end: 20111209
  6. GEMCITABINE [Suspect]
     Active Substance: GEMCITABINE\GEMCITABINE HYDROCHLORIDE
     Indication: BLADDER CANCER
     Route: 042
     Dates: start: 20111123, end: 20111130
  7. DEXAMETHASONE. [Concomitant]
     Active Substance: DEXAMETHASONE
  8. NALOXONE HYDROCHLORIDE. [Concomitant]
     Active Substance: NALOXONE HYDROCHLORIDE
     Dates: start: 20111031
  9. PURSENID [Concomitant]
     Dates: start: 20111210, end: 20111210
  10. DIAMICRON [Concomitant]
     Active Substance: GLICLAZIDE
  11. IMIPENEM [Concomitant]
     Active Substance: IMIPENEM
     Dates: start: 20111205, end: 20111210
  12. CISPLATIN. [Suspect]
     Active Substance: CISPLATIN
     Indication: BLADDER CANCER
     Route: 042
     Dates: start: 20111123, end: 20111123
  13. ERIBULIN MESILATE [Suspect]
     Active Substance: ERIBULIN
     Indication: BLADDER CANCER
     Route: 042
     Dates: start: 20111123, end: 20111130
  14. IBUPROFEN /00109205/ [Concomitant]
     Active Substance: IBUPROFEN
  15. METFORMINE [Concomitant]
     Active Substance: METFORMIN HYDROCHLORIDE
     Dates: start: 20111207, end: 20111210
  16. ORFIDAL [Concomitant]
     Active Substance: LORAZEPAM
     Dates: start: 20111205, end: 20111210
  17. OXYCODONE HYDROCHLORIDE. [Concomitant]
     Active Substance: OXYCODONE HYDROCHLORIDE
     Dates: start: 20111031
  18. PANTOPRAZOLE [Concomitant]
     Active Substance: PANTOPRAZOLE SODIUM
     Dates: start: 20111205, end: 20111210
  19. CIPROFLOXACIN HYDROCHLORIDE. [Concomitant]
     Active Substance: CIPROFLOXACIN HYDROCHLORIDE
     Dates: start: 20111210, end: 20111210

REACTIONS (16)
  - Febrile neutropenia [Recovered/Resolved]
  - Chills [Unknown]
  - Thrombocytopenia [Unknown]
  - Haematuria [Unknown]
  - Diarrhoea [Unknown]
  - Abdominal pain [Unknown]
  - Pyrexia [Unknown]
  - Decreased appetite [Unknown]
  - Intestinal ischaemia [Fatal]
  - Asthenia [Unknown]
  - Abdominal rigidity [Unknown]
  - Apallic syndrome [Unknown]
  - Intestinal perforation [Fatal]
  - Epistaxis [Unknown]
  - Chest pain [Unknown]
  - Abdominal distension [Unknown]

NARRATIVE: CASE EVENT DATE: 20111201
